FAERS Safety Report 9305111 (Version 1)
Quarter: 2013Q2

REPORT INFORMATION
  Report Type: Spontaneous
  Country: US (occurrence: US)
  Receive Date: 20130523
  Receipt Date: 20130523
  Transmission Date: 20140414
  Serious: Yes (Other)
  Sender: FDA-Public Use
  Company Number: PHEH2013US010333

PATIENT
  Sex: Female

DRUGS (10)
  1. EXELON PATCH [Suspect]
     Dosage: 4.6 MG, UNK
     Route: 062
  2. EXELON PATCH [Suspect]
     Dosage: 1 DF (9.5 MG) PER DAY
     Route: 062
     Dates: start: 20130418
  3. AMLODIPINE [Concomitant]
     Dosage: 10 MG, UNK
  4. METOPROLOL [Concomitant]
     Dosage: 25 MG, UNK
  5. FUROSEMIDE [Concomitant]
     Dosage: 40 MG, UNK
  6. PANTOPRAZOLE [Concomitant]
     Dosage: 20 MG, UNK
  7. ARMOUR THYROID [Concomitant]
     Dosage: 60 MG, UNK
  8. BABY ASPIRIN [Concomitant]
     Dosage: 80 MG, UNK
  9. ALPHAGAN [Concomitant]
     Dosage: 0.1 %, UNK
  10. BETIMOL [Concomitant]
     Dosage: 0.05 %, UNK

REACTIONS (7)
  - Hallucination [Unknown]
  - Fluid retention [Unknown]
  - Abnormal behaviour [Unknown]
  - Restlessness [Unknown]
  - Decreased appetite [Unknown]
  - Dyskinesia [Unknown]
  - Dizziness [Unknown]
